FAERS Safety Report 22298625 (Version 1)
Quarter: 2023Q2

REPORT INFORMATION
  Report Type: Spontaneous
  Country: US (occurrence: US)
  Receive Date: 20230509
  Receipt Date: 20230509
  Transmission Date: 20230721
  Serious: Yes (Other)
  Sender: FDA-Public Use
  Company Number: US-PFIZER INC-202300180068

PATIENT
  Age: 19 Year
  Sex: Female
  Weight: 58.97 kg

DRUGS (3)
  1. NURTEC ODT [Suspect]
     Active Substance: RIMEGEPANT SULFATE
     Indication: Migraine
     Dosage: 75 MG
     Route: 048
     Dates: start: 20230427, end: 20230428
  2. PROZAC [Concomitant]
     Active Substance: FLUOXETINE HYDROCHLORIDE
     Indication: Anxiety
     Dosage: 20 MG, 1X/DAY
     Route: 048
  3. DROSPIRENONE AND ETHINYL ESTRADIOL [Concomitant]
     Active Substance: DROSPIRENONE\ETHINYL ESTRADIOL
     Indication: Contraception
     Dosage: UNK UNK, 1X/DAY (3MG/.02MG TABLET ONCE A DAY BY MOUTH )
     Route: 048

REACTIONS (13)
  - Anaphylactic shock [Recovered/Resolved]
  - Oesophageal disorder [Unknown]
  - Dysphagia [Unknown]
  - Oropharyngeal pain [Unknown]
  - Dyspnoea [Unknown]
  - Speech disorder [Unknown]
  - Rash macular [Unknown]
  - Eye swelling [Unknown]
  - Swelling face [Unknown]
  - Nasal oedema [Unknown]
  - Swollen tongue [Unknown]
  - Tongue coated [Unknown]
  - Tongue movement disturbance [Unknown]

NARRATIVE: CASE EVENT DATE: 20230428
